FAERS Safety Report 19864506 (Version 1)
Quarter: 2021Q3

REPORT INFORMATION
  Report Type: Spontaneous
  Country: CA (occurrence: CA)
  Receive Date: 20210921
  Receipt Date: 20210921
  Transmission Date: 20211014
  Serious: Yes (Other)
  Sender: FDA-Public Use
  Company Number: CA-PFIZER INC-202100958097

PATIENT
  Age: 60 Year
  Sex: Female
  Weight: 86.1 kg

DRUGS (1)
  1. XELJANZ [Suspect]
     Active Substance: TOFACITINIB CITRATE
     Indication: COLITIS ULCERATIVE
     Dosage: 10 MG, 2X/DAY
     Route: 048
     Dates: start: 20210716

REACTIONS (5)
  - Therapeutic response unexpected [Recovered/Resolved]
  - Sleep disorder [Recovering/Resolving]
  - Abdominal pain upper [Not Recovered/Not Resolved]
  - Haematochezia [Unknown]
  - Dyspepsia [Recovering/Resolving]

NARRATIVE: CASE EVENT DATE: 2021
